FAERS Safety Report 4355455-8 (Version None)
Quarter: 2004Q2

REPORT INFORMATION
  Report Type: 
  Country: None (occurrence: None)
  Receive Date: 20040510
  Receipt Date: 20040428
  Transmission Date: 20050107
  Serious: Yes (Hospitalization)
  Sender: FDA-Public Use
  Company Number: FR-BRISTOL-MYERS SQUIBB COMPANY-12574307

PATIENT
  Age: 72 Year
  Sex: Male

DRUGS (11)
  1. ELISOR [Suspect]
     Route: 048
  2. TOPLEXIL [Suspect]
     Route: 048
     Dates: start: 20031027, end: 20031103
  3. KARDEGIC [Suspect]
     Route: 048
  4. LORAZEPAM [Suspect]
     Route: 048
     Dates: end: 20031031
  5. OMEPRAZOLE [Suspect]
     Route: 048
  6. KERLONE [Suspect]
     Route: 048
  7. BRONCHOKOD [Concomitant]
     Dates: start: 20031027, end: 20031103
  8. PARACETAMOL BIOGARAN [Concomitant]
     Dates: start: 20031027, end: 20031103
  9. ATROVENT [Concomitant]
     Dosage: DOSAGE FORM = PUFFS
     Dates: start: 20030912
  10. ETIOVEN [Concomitant]
     Dosage: DOSE = ^30, 1 TAB/DAY^
  11. VASTAREL [Concomitant]

REACTIONS (9)
  - ERYTHEMA [None]
  - FACE OEDEMA [None]
  - GAMMA-GLUTAMYLTRANSFERASE INCREASED [None]
  - LYMPHADENOPATHY [None]
  - MOUTH ULCERATION [None]
  - NECK PAIN [None]
  - PRURITUS [None]
  - RASH VESICULAR [None]
  - TOXIC SKIN ERUPTION [None]
